FAERS Safety Report 5609748-4 (Version None)
Quarter: 2008Q1

REPORT INFORMATION
  Report Type: 
  Country: None (occurrence: None)
  Receive Date: 20080131
  Receipt Date: 20070925
  Transmission Date: 20080703
  Serious: No
  Sender: FDA-Public Use
  Company Number: US-BAYER-200713097BCC

PATIENT
  Age: 45 Year
  Sex: Female

DRUGS (3)
  1. ALEVE COLD AND SINUS [Suspect]
     Indication: SINUS HEADACHE
     Route: 048
     Dates: start: 20070920, end: 20070920
  2. METFORMIN HCL [Concomitant]
  3. ACTOS [Concomitant]

REACTIONS (1)
  - SINUS HEADACHE [None]
